FAERS Safety Report 17529310 (Version 1)
Quarter: 2020Q1

REPORT INFORMATION
  Report Type: Spontaneous
  Country: NO (occurrence: NO)
  Receive Date: 20200311
  Receipt Date: 20200311
  Transmission Date: 20200409
  Serious: Yes (Hospitalization)
  Sender: FDA-Public Use
  Company Number: NO-MYLANLABS-2020M1026249

PATIENT
  Sex: Male

DRUGS (2)
  1. ESCITALOPRAM [Suspect]
     Active Substance: ESCITALOPRAM OXALATE
     Indication: DEPRESSION
     Dosage: 10 MILLIGRAM, QD
     Route: 063
  2. ESCITALOPRAM [Suspect]
     Active Substance: ESCITALOPRAM OXALATE
     Dosage: 10 MILLIGRAM, QD
     Route: 064

REACTIONS (6)
  - Tremor [Recovering/Resolving]
  - Foetal exposure during pregnancy [Recovered/Resolved]
  - Muscle rigidity [Recovering/Resolving]
  - Irritability [Recovering/Resolving]
  - Opisthotonus [Recovering/Resolving]
  - Exposure via breast milk [Unknown]

NARRATIVE: CASE EVENT DATE: 2019
